FAERS Safety Report 11247526 (Version 3)
Quarter: 2015Q3

REPORT INFORMATION
  Report Type: Spontaneous
  Country: US (occurrence: US)
  Receive Date: 20150708
  Receipt Date: 20150806
  Transmission Date: 20151125
  Serious: Yes (Death, Hospitalization)
  Sender: FDA-Public Use
  Company Number: US-B.I. PHARMACEUTICALS,INC./RIDGEFIELD-2015-BI-36455BP

PATIENT
  Age: 85 Year
  Sex: Female
  Weight: 55.34 kg

DRUGS (1)
  1. OFEV [Suspect]
     Active Substance: NINTEDANIB
     Indication: IDIOPATHIC PULMONARY FIBROSIS
     Dosage: 200 MG
     Route: 048
     Dates: start: 201503, end: 20150501

REACTIONS (2)
  - Death [Fatal]
  - Ventricular tachyarrhythmia [Unknown]

NARRATIVE: CASE EVENT DATE: 20150519
